FAERS Safety Report 15905659 (Version 1)
Quarter: 2019Q1

REPORT INFORMATION
  Report Type: Spontaneous
  Country: US (occurrence: US)
  Receive Date: 20190111
  Receipt Date: 20190111
  Transmission Date: 20190417
  Serious: No
  Sender: FDA-Public Use
  Company Number: None

PATIENT

DRUGS (4)
  1. FLUOROURACIL. [Suspect]
     Active Substance: FLUOROURACIL
  2. ABRAXANE [Suspect]
     Active Substance: PACLITAXEL
  3. FOLINIC ACID [Suspect]
     Active Substance: LEUCOVORIN
  4. OXALIPLATIN. [Suspect]
     Active Substance: OXALIPLATIN

REACTIONS (7)
  - Dyspnoea [None]
  - Pulmonary oedema [None]
  - Cardiac disorder [None]
  - Bronchospasm [None]
  - Stress cardiomyopathy [None]
  - Cardiac failure [None]
  - Ejection fraction decreased [None]
